FAERS Safety Report 15365981 (Version 1)
Quarter: 2018Q3

REPORT INFORMATION
  Report Type: Spontaneous
  Country: US (occurrence: US)
  Receive Date: 20180831
  Receipt Date: 20180831
  Transmission Date: 20181010
  Serious: No
  Sender: FDA-Public Use
  Company Number: None

PATIENT
  Age: 76 Year
  Sex: Female
  Weight: 70.31 kg

DRUGS (38)
  1. PROPRANOLOL [Concomitant]
     Active Substance: PROPRANOLOL HYDROCHLORIDE
  2. ZYRTEC [Concomitant]
     Active Substance: CETIRIZINE HYDROCHLORIDE
  3. METAXALONE. [Concomitant]
     Active Substance: METAXALONE
  4. RANITIDINE. [Concomitant]
     Active Substance: RANITIDINE
  5. GAS?X [Concomitant]
     Active Substance: DIMETHICONE
  6. BACLOFEN. [Concomitant]
     Active Substance: BACLOFEN
  7. ATIVAN [Concomitant]
     Active Substance: LORAZEPAM
  8. TIZANIDINE. [Concomitant]
     Active Substance: TIZANIDINE
  9. BUPROPION. [Concomitant]
     Active Substance: BUPROPION
  10. LYRICA [Concomitant]
     Active Substance: PREGABALIN
  11. NEBULIZER [Concomitant]
     Active Substance: DEVICE
  12. TRELEGY ELLIPTA [Suspect]
     Active Substance: FLUTICASONE FUROATE\UMECLIDINIUM BROMIDE\VILANTEROL TRIFENATATE
     Indication: ASTHMA
     Dosage: ?          QUANTITY:1 DF DOSAGE FORM;?
     Route: 048
     Dates: start: 20180808, end: 20180808
  13. FUSION PLUS [Concomitant]
     Active Substance: IRON\VITAMIN B
  14. VITAMIN D3 [Concomitant]
     Active Substance: CHOLECALCIFEROL
  15. LUTEIN [Concomitant]
     Active Substance: LUTEIN
  16. CRANBERRY CAPSULES [Concomitant]
  17. BENTYL [Concomitant]
     Active Substance: DICYCLOMINE HYDROCHLORIDE
  18. ONDANSETRON [Concomitant]
     Active Substance: ONDANSETRON
  19. SERTRALINE [Concomitant]
     Active Substance: SERTRALINE HYDROCHLORIDE
  20. REGLAN [Concomitant]
     Active Substance: METOCLOPRAMIDE HYDROCHLORIDE
  21. NORVASC [Concomitant]
     Active Substance: AMLODIPINE BESYLATE
  22. AZITHROMICIN [Concomitant]
     Active Substance: AZITHROMYCIN
  23. MAGNESIUM [Concomitant]
     Active Substance: MAGNESIUM
  24. PHILLIPS LAXATIVE [Concomitant]
  25. NAUZENE [Concomitant]
  26. GLUCOSAMINE [Concomitant]
     Active Substance: GLUCOSAMINE
  27. STIOLTO RESPIMAT [Concomitant]
     Active Substance: OLODATEROL HYDROCHLORIDE\TIOTROPIUM BROMIDE MONOHYDRATE
  28. TEMAZEPAM. [Concomitant]
     Active Substance: TEMAZEPAM
  29. BROVANA [Concomitant]
     Active Substance: ARFORMOTEROL TARTRATE
  30. LOSARTAN. [Concomitant]
     Active Substance: LOSARTAN
  31. PLAQUENIL [Concomitant]
     Active Substance: HYDROXYCHLOROQUINE SULFATE
  32. PANTOPRAZOLE [Concomitant]
     Active Substance: PANTOPRAZOLE
  33. SYNTHROID [Concomitant]
     Active Substance: LEVOTHYROXINE SODIUM
  34. AMLODIPINE [Concomitant]
     Active Substance: AMLODIPINE BESYLATE
  35. BIOTIN [Concomitant]
     Active Substance: BIOTIN
  36. DOXAZOSIN [Concomitant]
     Active Substance: DOXAZOSIN\DOXAZOSIN MESYLATE
  37. METHENAMINE [Concomitant]
     Active Substance: METHENAMINE
  38. TOPIRAMATE. [Concomitant]
     Active Substance: TOPIRAMATE

REACTIONS (3)
  - Migraine [None]
  - Nervousness [None]
  - Cough [None]

NARRATIVE: CASE EVENT DATE: 20180807
